FAERS Safety Report 17884173 (Version 1)
Quarter: 2020Q2

REPORT INFORMATION
  Report Type: Spontaneous
  Country: FR (occurrence: FR)
  Receive Date: 20200611
  Receipt Date: 20200611
  Transmission Date: 20200714
  Serious: Yes (Hospitalization)
  Sender: FDA-Public Use
  Company Number: FR-ACCORD-184884

PATIENT
  Age: 67 Year
  Sex: Female

DRUGS (1)
  1. ATORVASTATIN/ATORVASTATIN CALCIUM [Suspect]
     Active Substance: ATORVASTATIN CALCIUM
     Indication: CORONARY ARTERIAL STENT INSERTION
     Route: 048
     Dates: start: 202001, end: 20200429

REACTIONS (5)
  - Hepatocellular injury [Recovering/Resolving]
  - Myalgia [Recovered/Resolved]
  - Rhabdomyolysis [Recovering/Resolving]
  - Myositis [Recovering/Resolving]
  - Cholestasis [Recovering/Resolving]

NARRATIVE: CASE EVENT DATE: 202004
